FAERS Safety Report 6883993-2 (Version None)
Quarter: 2010Q3

REPORT INFORMATION
  Report Type: 
  Country: None (occurrence: None)
  Receive Date: 20100729
  Receipt Date: 20100720
  Transmission Date: 20110219
  Serious: Yes (Hospitalization)
  Sender: FDA-Public Use
  Company Number: US-ASTRAZENECA-2010SE34028

PATIENT
  Age: 56 Year
  Sex: Female

DRUGS (6)
  1. CRESTOR [Suspect]
     Route: 048
  2. DIAVAN [Concomitant]
  3. SYNTHROID [Concomitant]
  4. PAXIL [Concomitant]
     Route: 048
  5. ASPIRIN [Concomitant]
  6. BYETTA [Concomitant]

REACTIONS (3)
  - DIZZINESS [None]
  - FALL [None]
  - SPEECH DISORDER [None]
